FAERS Safety Report 12983145 (Version 1)
Quarter: 2016Q4

REPORT INFORMATION
  Report Type: Spontaneous
  Country: US (occurrence: US)
  Receive Date: 20161129
  Receipt Date: 20161129
  Transmission Date: 20170207
  Serious: No
  Sender: FDA-Public Use
  Company Number: None

PATIENT

DRUGS (2)
  1. CYPROHEPTADINE HCL [Suspect]
     Active Substance: CYPROHEPTADINE HYDROCHLORIDE
     Dosage: LIQUID
  2. VALIUM [Suspect]
     Active Substance: DIAZEPAM
     Dosage: LIQUID

REACTIONS (2)
  - Intercepted drug administration error [None]
  - Product label on wrong product [None]
